FAERS Safety Report 10611132 (Version 1)
Quarter: 2014Q4

REPORT INFORMATION
  Report Type: Other
  Country: GB (occurrence: GB)
  Receive Date: 20141126
  Receipt Date: 20141126
  Transmission Date: 20150529
  Serious: Yes (Hospitalization, Other)
  Sender: FDA-Public Use
  Company Number: GB-MYLANLABS-2014M1011342

PATIENT

DRUGS (10)
  1. BENDROFLUMETHIAZIDE [Suspect]
     Active Substance: BENDROFLUMETHIAZIDE
     Dosage: IN THE MORNING.
     Route: 048
     Dates: end: 20110719
  2. HYDROXOCOBALAMIN [Concomitant]
     Active Substance: HYDROXOCOBALAMIN
  3. OMEPRAZOLE. [Suspect]
     Active Substance: OMEPRAZOLE
     Dosage: 20 MG, QD
     Route: 048
     Dates: end: 20110719
  4. RAMIPRIL. [Suspect]
     Active Substance: RAMIPRIL
     Dosage: IN THE MORNING
     Route: 048
     Dates: start: 20110615, end: 20110719
  5. AMITRIPTYLINE [Suspect]
     Active Substance: AMITRIPTYLINE
     Indication: ANALGESIC THERAPY
     Dosage: AT NIGHT
     Route: 048
     Dates: end: 20110719
  6. COCODAMOL [Suspect]
     Active Substance: ACETAMINOPHEN\CODEINE PHOSPHATE
     Indication: HERPES ZOSTER
     Dosage: 30/500
     Route: 048
     Dates: end: 20110719
  7. RAMIPRIL. [Suspect]
     Active Substance: RAMIPRIL
     Dosage: IN THE MORNING
     Route: 048
     Dates: start: 20110520, end: 20110615
  8. QUININE SULFATE. [Concomitant]
     Active Substance: QUININE SULFATE
     Dosage: AT NIGHT
  9. CLENIL MODULITE [Concomitant]
     Active Substance: BECLOMETHASONE DIPROPIONATE
  10. IPRATROPIUM BROMIDE. [Concomitant]
     Active Substance: IPRATROPIUM BROMIDE
     Dosage: AS NEEDED.

REACTIONS (12)
  - Wheezing [Recovering/Resolving]
  - Confusional state [Recovered/Resolved]
  - Hyponatraemia [Recovered/Resolved]
  - Vomiting [Unknown]
  - Chronic obstructive pulmonary disease [Recovered/Resolved]
  - Dehydration [Unknown]
  - Hypoxia [Unknown]
  - Drug ineffective [Unknown]
  - Lower respiratory tract infection [Recovering/Resolving]
  - Acute kidney injury [Recovered/Resolved]
  - Hypophagia [Unknown]
  - Dyspnoea [Recovering/Resolving]

NARRATIVE: CASE EVENT DATE: 20110718
